FAERS Safety Report 18526447 (Version 1)
Quarter: 2020Q4

REPORT INFORMATION
  Report Type: Spontaneous
  Country: US (occurrence: US)
  Receive Date: 20201120
  Receipt Date: 20201120
  Transmission Date: 20210114
  Serious: Yes (Hospitalization, Other)
  Sender: FDA-Public Use
  Company Number: US-AMGEN-USASP2020183821

PATIENT
  Age: 77 Year
  Sex: Female

DRUGS (2)
  1. ALGAE CALCIUM [Concomitant]
     Dosage: UNK UNK, BID
  2. PROLIA [Suspect]
     Active Substance: DENOSUMAB
     Indication: OSTEOPOROSIS POSTMENOPAUSAL
     Dosage: 60 MILLIGRAM
     Route: 065
     Dates: start: 2017, end: 202001

REACTIONS (9)
  - Back pain [Not Recovered/Not Resolved]
  - Foot fracture [Unknown]
  - Pancreatitis [Not Recovered/Not Resolved]
  - Hand fracture [Unknown]
  - Fibromyalgia [Unknown]
  - Pain in jaw [Not Recovered/Not Resolved]
  - Therapy non-responder [Unknown]
  - Limb injury [Unknown]
  - Fall [Unknown]

NARRATIVE: CASE EVENT DATE: 2020
